FAERS Safety Report 11651695 (Version 3)
Quarter: 2025Q3

REPORT INFORMATION
  Report Type: Spontaneous
  Country: EU (occurrence: AR)
  Receive Date: 20151022
  Receipt Date: 20250813
  Transmission Date: 20251021
  Serious: Yes (Death, Other)
  Sender: MERCK SHARP & DOHME LLC
  Company Number: EU-009507513-1510ESP008921

PATIENT
  Age: 63 Year
  Sex: Female

DRUGS (4)
  1. CASPOFUNGIN ACETATE [Suspect]
     Active Substance: CASPOFUNGIN ACETATE
     Indication: Candida infection
     Dosage: DOSE DESCRIPTION : 50 MG, QD?DAILY DOSE : 50 MILLIGRAM?REGIMEN DOSE : 450  MILLIGRAM
     Dates: start: 20130602, end: 20130610
  2. CASPOFUNGIN ACETATE [Suspect]
     Active Substance: CASPOFUNGIN ACETATE
     Indication: Candida infection
     Dates: start: 20130428, end: 20130506
  3. CASPOFUNGIN ACETATE [Suspect]
     Active Substance: CASPOFUNGIN ACETATE
     Indication: Candida infection
     Dates: start: 20130601, end: 20130601
  4. FLUCONAZOLE [Concomitant]
     Active Substance: FLUCONAZOLE
     Dates: start: 20130524, end: 20130531

REACTIONS (2)
  - Systemic candida [Fatal]
  - Drug resistance [Unknown]

NARRATIVE: CASE EVENT DATE: 20130101
